FAERS Safety Report 10058226 (Version 1)
Quarter: 2014Q2

REPORT INFORMATION
  Report Type: Spontaneous
  Country: US (occurrence: None)
  Receive Date: 20140403
  Receipt Date: 20140403
  Transmission Date: 20141212
  Serious: Yes (Other)
  Sender: FDA-Public Use
  Company Number: None

PATIENT
  Age: 59 Year
  Sex: Female
  Weight: 72.12 kg

DRUGS (7)
  1. ALORA [Suspect]
     Indication: MENOPAUSE
     Dosage: 0.05MG, APPLY ONE PATCH 2X/WK,
  2. LEVOTHYROXINE [Concomitant]
  3. MOBIC [Concomitant]
  4. ALPRAZOLAM [Concomitant]
  5. FLUOXETINE [Concomitant]
  6. PULMICORT [Concomitant]
  7. PROGECTERONE [Concomitant]

REACTIONS (1)
  - Arthralgia [None]
